FAERS Safety Report 4708041-1 (Version None)
Quarter: 2005Q2

REPORT INFORMATION
  Report Type: 
  Country: None (occurrence: None)
  Receive Date: 20050629
  Receipt Date: 20050509
  Transmission Date: 20051028
  Serious: No
  Sender: FDA-Public Use
  Company Number: 05P-163-0300075-00

PATIENT
  Age: 53 Year
  Sex: Female
  Weight: 6.804 kg

DRUGS (17)
  1. HUMIRA [Suspect]
     Indication: RHEUMATOID ARTHRITIS
     Dosage: 40 MG, 1 IN 2 WK, SUBCUTANEOUS
     Route: 058
     Dates: start: 20040801
  2. PIROXICAM [Concomitant]
  3. PREDNISONE TAB [Concomitant]
  4. HYDROCHLOROTHIAZIDE [Concomitant]
  5. AMLODIPINE BESYLATE [Concomitant]
  6. RAMIPRIL [Concomitant]
  7. ATENOLOL [Concomitant]
  8. ESTROGENS CONJUGATED [Concomitant]
  9. LEVOTHYROXINE SODIUM [Concomitant]
  10. EFFEXOR XR [Concomitant]
  11. LEFLUNOMIDE [Concomitant]
  12. ATORVASTATIN CALCIUM [Concomitant]
  13. ESOMEPRAZOLE [Concomitant]
  14. POTASSIUM CHLORIDE [Concomitant]
  15. ALENDRONATE SODIUM [Concomitant]
  16. GABAPENTIN [Concomitant]
  17. MULTI-VITAMINS [Concomitant]

REACTIONS (2)
  - CONDITION AGGRAVATED [None]
  - FATIGUE [None]
